FAERS Safety Report 14198367 (Version 1)
Quarter: 2017Q4

REPORT INFORMATION
  Report Type: Spontaneous
  Country: FR (occurrence: FR)
  Receive Date: 20171117
  Receipt Date: 20171117
  Transmission Date: 20180321
  Serious: Yes (Other)
  Sender: FDA-Public Use
  Company Number: FR-MERCK KGAA-2034465

PATIENT
  Age: 63 Year
  Sex: Female

DRUGS (5)
  1. METEOSPASMIL [Concomitant]
  2. NOVOTHYROX [Suspect]
     Active Substance: LEVOTHYROXINE SODIUM
     Indication: PRODUCT USED FOR UNKNOWN INDICATION
     Dates: start: 201704
  3. TANGANIL [Concomitant]
     Active Substance: ACETYLLEUCINE
  4. NOVOTHYROX [Suspect]
     Active Substance: LEVOTHYROXINE SODIUM
  5. PARACETAMOL [Concomitant]
     Active Substance: ACETAMINOPHEN

REACTIONS (6)
  - Fatigue [None]
  - Migraine [None]
  - Depression [None]
  - Feeling abnormal [None]
  - Meniere^s disease [None]
  - Abdominal pain [None]

NARRATIVE: CASE EVENT DATE: 2017
